FAERS Safety Report 7148915-8 (Version None)
Quarter: 2010Q4

REPORT INFORMATION
  Report Type: 
  Country: None (occurrence: None)
  Receive Date: 20101209
  Receipt Date: 20101203
  Transmission Date: 20110411
  Serious: Yes (Death)
  Sender: FDA-Public Use
  Company Number: A0875944A

PATIENT
  Sex: Male

DRUGS (1)
  1. VOTRIENT [Suspect]
     Dosage: 800MG PER DAY
     Route: 048
     Dates: start: 20100723

REACTIONS (5)
  - BLOOD PRESSURE INCREASED [None]
  - DEATH [None]
  - DRUG INEFFECTIVE [None]
  - HEADACHE [None]
  - MALIGNANT NEOPLASM PROGRESSION [None]
